FAERS Safety Report 21574635 (Version 1)
Quarter: 2022Q4

REPORT INFORMATION
  Report Type: Spontaneous
  Country: CN (occurrence: CN)
  Receive Date: 20221109
  Receipt Date: 20221109
  Transmission Date: 20230113
  Serious: Yes (Other)
  Sender: FDA-Public Use
  Company Number: CN-SUN PHARMACEUTICAL INDUSTRIES LTD-2022R1-362641

PATIENT
  Age: 67 Year
  Sex: Female

DRUGS (2)
  1. CARBOPLATIN [Suspect]
     Active Substance: CARBOPLATIN
     Indication: Ovarian clear cell carcinoma
     Dosage: UNK
     Route: 065
     Dates: start: 20170614, end: 20170928
  2. PACLITAXEL [Suspect]
     Active Substance: PACLITAXEL
     Indication: Ovarian clear cell carcinoma
     Dosage: 150 MG/M2 ON DAY 1
     Route: 065
     Dates: start: 20170614, end: 20170928

REACTIONS (1)
  - Disease progression [Unknown]
